FAERS Safety Report 15458214 (Version 1)
Quarter: 2018Q3

REPORT INFORMATION
  Report Type: Spontaneous
  Country: US (occurrence: US)
  Receive Date: 20180928
  Receipt Date: 20180928
  Transmission Date: 20181010
  Serious: Yes (Other)
  Sender: FDA-Public Use
  Company Number: None

PATIENT
  Age: 80 Year
  Sex: Female
  Weight: 63 kg

DRUGS (1)
  1. XIIDRA [Suspect]
     Active Substance: LIFITEGRAST
     Indication: DRY EYE
     Route: 047

REACTIONS (6)
  - Rhinorrhoea [None]
  - Headache [None]
  - Mental disorder [None]
  - Visual impairment [None]
  - Application site odour [None]
  - Oropharyngeal pain [None]

NARRATIVE: CASE EVENT DATE: 20180909
